FAERS Safety Report 5888888-9 (Version None)
Quarter: 2008Q3

REPORT INFORMATION
  Report Type: 
  Country: None (occurrence: None)
  Receive Date: 20080919
  Receipt Date: 20080912
  Transmission Date: 20090109
  Serious: Yes (Hospitalization)
  Sender: FDA-Public Use
  Company Number: PHHY2008GB20954

PATIENT
  Sex: Male

DRUGS (3)
  1. CLOZARIL [Suspect]
     Indication: SCHIZOPHRENIA
     Dosage: 475 MG/DAY
     Dates: start: 19921216, end: 20080826
  2. CLONAZEPAM [Concomitant]
  3. BENZODIAZEPINES [Concomitant]

REACTIONS (7)
  - AGITATION [None]
  - BLOOD CREATINE PHOSPHOKINASE INCREASED [None]
  - PSYCHOTIC DISORDER [None]
  - PYREXIA [None]
  - RALES [None]
  - TACHYCARDIA [None]
  - URINARY INCONTINENCE [None]
